FAERS Safety Report 6935311-9 (Version None)
Quarter: 2010Q3

REPORT INFORMATION
  Report Type: 
  Country: None (occurrence: None)
  Receive Date: 20100822
  Receipt Date: 20100803
  Transmission Date: 20110219
  Serious: Yes (Other)
  Sender: FDA-Public Use
  Company Number: PHHY2010ZA47272

PATIENT
  Sex: Male

DRUGS (3)
  1. TAREG [Suspect]
     Dosage: 160 MG, UNK
     Dates: start: 20091027
  2. CHOLESTEROL [Concomitant]
     Dosage: UNK
  3. CRESTOR [Concomitant]

REACTIONS (2)
  - BRACHYTHERAPY [None]
  - PROSTATE CANCER [None]
